FAERS Safety Report 24422506 (Version 1)
Quarter: 2024Q4

REPORT INFORMATION
  Report Type: Spontaneous
  Country: US (occurrence: None)
  Receive Date: 20241009
  Receipt Date: 20241009
  Transmission Date: 20250115
  Serious: Yes (Hospitalization)
  Sender: Public
  Company Number: None

PATIENT
  Age: 75 Year
  Sex: Male

DRUGS (5)
  1. ENALAPRIL MALEATE [Suspect]
     Active Substance: ENALAPRIL MALEATE
     Indication: Hypertension
  2. SPIRONOLACTONE [Suspect]
     Active Substance: SPIRONOLACTONE
     Indication: Cardiac failure congestive
     Dates: start: 20240514, end: 20240625
  3. BACTRIM [Suspect]
     Active Substance: SULFAMETHOXAZOLE\TRIMETHOPRIM
  4. EMPAGLIFLOZIN [Suspect]
     Active Substance: EMPAGLIFLOZIN
  5. CARVEDILOL [Suspect]
     Active Substance: CARVEDILOL

REACTIONS (5)
  - Acute kidney injury [None]
  - Hyperkalaemia [None]
  - Genital infection fungal [None]
  - Impetigo [None]
  - Blood pressure decreased [None]

NARRATIVE: CASE EVENT DATE: 20240628
